FAERS Safety Report 16336313 (Version 2)
Quarter: 2019Q2

REPORT INFORMATION
  Report Type: Spontaneous
  Country: US (occurrence: US)
  Receive Date: 20190521
  Receipt Date: 20190628
  Transmission Date: 20190711
  Serious: Yes (Hospitalization, Disabling, Other)
  Sender: FDA-Public Use
  Company Number: US-ALVOGEN-2019-ALVOGEN-099826

PATIENT
  Age: 59 Year
  Sex: Male
  Weight: 108.86 kg

DRUGS (4)
  1. ACETYLSALICYLIC ACID [Concomitant]
     Active Substance: ASPIRIN
     Indication: PRODUCT USED FOR UNKNOWN INDICATION
     Dosage: DAILY
  2. EXENATIDE. [Suspect]
     Active Substance: EXENATIDE
     Indication: TYPE 2 DIABETES MELLITUS
     Dosage: TWO TIMES A DAY
     Route: 058
     Dates: start: 2016
  3. LISINOPRIL. [Suspect]
     Active Substance: LISINOPRIL
     Indication: BLOOD PRESSURE MEASUREMENT
     Dosage: DAILY
     Dates: start: 2017
  4. PRAVASTATIN. [Concomitant]
     Active Substance: PRAVASTATIN
     Indication: PRODUCT USED FOR UNKNOWN INDICATION

REACTIONS (4)
  - Hospitalisation [Unknown]
  - Arthritis [Unknown]
  - Weight fluctuation [Unknown]
  - Kidney infection [Unknown]

NARRATIVE: CASE EVENT DATE: 201901
